FAERS Safety Report 15691567 (Version 1)
Quarter: 2018Q4

REPORT INFORMATION
  Report Type: Spontaneous
  Country: ES (occurrence: ES)
  Receive Date: 20181205
  Receipt Date: 20181205
  Transmission Date: 20190205
  Serious: Yes (Other)
  Sender: FDA-Public Use
  Company Number: PHHY2018ES174148

PATIENT
  Age: 17 Year
  Sex: Female

DRUGS (5)
  1. SEPTRIN FORTE [Concomitant]
     Active Substance: SULFAMETHOXAZOLE\TRIMETHOPRIM
     Indication: OPPORTUNISTIC INFECTION PROPHYLAXIS
     Dosage: 3 DF, QW (3 UG/LITER)
     Route: 048
     Dates: start: 201707
  2. SANDIMMUN NEORAL [Suspect]
     Active Substance: CYCLOSPORINE
     Indication: STEM CELL TRANSPLANT
     Dosage: 5 MG, BID
     Route: 048
     Dates: start: 201707
  3. ACICLOVIR [Concomitant]
     Active Substance: ACYCLOVIR
     Indication: OPPORTUNISTIC INFECTION PROPHYLAXIS
     Dosage: 600 MG, Q8H
     Route: 048
     Dates: start: 201707
  4. MABTHERA [Interacting]
     Active Substance: RITUXIMAB
     Indication: EPSTEIN-BARR VIRUS INFECTION
     Dosage: 500 MG, QW
     Route: 042
     Dates: start: 20171024, end: 20171116
  5. CHOLECALCIFEROL [Concomitant]
     Active Substance: CHOLECALCIFEROL
     Indication: OSTEOPOROSIS PROPHYLAXIS
     Dosage: 1 ML, QD
     Route: 048
     Dates: start: 201707

REACTIONS (1)
  - Obliterative bronchiolitis [Recovering/Resolving]

NARRATIVE: CASE EVENT DATE: 20180112
